FAERS Safety Report 4940059-6 (Version None)
Quarter: 2006Q1

REPORT INFORMATION
  Report Type: 
  Country: None (occurrence: None)
  Receive Date: 20060310
  Receipt Date: 20060124
  Transmission Date: 20060701
  Serious: Yes (Death)
  Sender: FDA-Public Use
  Company Number: 2006AC00165

PATIENT
  Age: 24 Year
  Sex: Female
  Weight: 55 kg

DRUGS (4)
  1. PROPOFOL [Suspect]
     Indication: CONVULSION
     Dosage: STOPPED FOR FOUR DAYS, THEN RESTARTED IN HIGH DOSES
  2. FOSPHENYTOIN SODIUM [Concomitant]
     Indication: CONVULSION
  3. MIDAZOLAM HCL [Concomitant]
     Indication: CONVULSION
  4. PHENOBARBITAL TAB [Concomitant]
     Indication: CONVULSION

REACTIONS (7)
  - BRADYCARDIA [None]
  - CARDIAC ARREST [None]
  - CARDIAC PACEMAKER MALFUNCTION [None]
  - ELECTROMECHANICAL DISSOCIATION [None]
  - HYPERKALAEMIA [None]
  - HYPOTENSION [None]
  - METABOLIC ACIDOSIS [None]
